FAERS Safety Report 20992311 (Version 1)
Quarter: 2022Q2

REPORT INFORMATION
  Report Type: Report from Study
  Country: US (occurrence: US)
  Receive Date: 20220622
  Receipt Date: 20220622
  Transmission Date: 20220721
  Serious: No
  Sender: FDA-Public Use
  Company Number: US-NOVARTISTESTPH-NVSC2022US142899

PATIENT
  Sex: Male

DRUGS (1)
  1. ENTRESTO [Suspect]
     Active Substance: SACUBITRIL\VALSARTAN
     Indication: Product used for unknown indication
     Dosage: 49/51MG, BID (24/26 MG)
     Route: 048
     Dates: start: 20220514

REACTIONS (11)
  - Skin discolouration [Recovering/Resolving]
  - Peripheral swelling [Recovering/Resolving]
  - Somnolence [Recovering/Resolving]
  - Dysphonia [Not Recovered/Not Resolved]
  - Dehydration [Unknown]
  - Dyspnoea exertional [Recovering/Resolving]
  - Feeling abnormal [Unknown]
  - Secretion discharge [Unknown]
  - Borderline personality disorder [Unknown]
  - Headache [Unknown]
  - Fatigue [Recovering/Resolving]
